FAERS Safety Report 12175101 (Version 3)
Quarter: 2016Q2

REPORT INFORMATION
  Report Type: Spontaneous
  Country: US (occurrence: US)
  Receive Date: 20160314
  Receipt Date: 20160421
  Transmission Date: 20160815
  Serious: Yes (Hospitalization, Other)
  Sender: FDA-Public Use
  Company Number: US-SMITH AND NEPHEW, INC-2016SMT00215

PATIENT
  Age: 62 Year
  Sex: Male
  Weight: 83.9 kg

DRUGS (19)
  1. FUROSEMIDE. [Concomitant]
     Active Substance: FUROSEMIDE
     Dosage: 20 MG, 1X/DAY
     Route: 048
  2. UNSPECIFIED TRANSPLANT MEDICATIONS [Concomitant]
     Dosage: UNK
  3. ASPIRIN. [Concomitant]
     Active Substance: ASPIRIN
     Dosage: 81 MG, 1X/DAY
     Route: 048
  4. DOCUSATE SODIUM. [Concomitant]
     Active Substance: DOCUSATE SODIUM
     Dosage: 100 MG, 2X/DAY
     Route: 048
  5. INSULIN DEGLUDEC [Concomitant]
     Active Substance: INSULIN DEGLUDEC
     Dosage: UNK, AS DIRECTED
     Route: 058
  6. PREDNISONE. [Concomitant]
     Active Substance: PREDNISONE
     Dosage: 10 MG, 1X/DAY
     Route: 048
  7. TACROLIMUS. [Concomitant]
     Active Substance: TACROLIMUS
     Dosage: 2 MG, 2X/DAY
     Route: 048
  8. VALGANCICLOVIR. [Concomitant]
     Active Substance: VALGANCICLOVIR
     Dosage: 450 MG, 1X/DAY
     Route: 048
  9. DAPSONE. [Concomitant]
     Active Substance: DAPSONE
     Dosage: 100 MG, 1X/DAY
     Route: 048
  10. EVEROLIMUS [Concomitant]
     Active Substance: EVEROLIMUS
     Dosage: 2.25 MG, 2X/DAY
     Route: 048
  11. REGRANEX [Suspect]
     Active Substance: BECAPLERMIN
     Indication: WOUND
     Dosage: 1 DOSAGE UNITS, 1X/DAY
     Dates: start: 201602
  12. CINACALCET [Concomitant]
     Active Substance: CINACALCET
     Dosage: 30 MG, 1X/DAY
     Route: 048
  13. OMEPRAZOLE. [Concomitant]
     Active Substance: OMEPRAZOLE
     Dosage: 40 MG, 1X/DAY
     Route: 048
  14. VITAMIN D3 [Concomitant]
     Active Substance: CHOLECALCIFEROL
     Dosage: 2000 U, 1X/DAY
     Route: 048
  15. INSULIN GLARGINE [Concomitant]
     Active Substance: INSULIN GLARGINE
     Dosage: 30 U, 1X/DAY
     Route: 058
  16. PREDNISONE. [Concomitant]
     Active Substance: PREDNISONE
     Dosage: 15 MG, 1X/DAY
     Route: 048
  17. SIMVASTATIN. [Concomitant]
     Active Substance: SIMVASTATIN
     Dosage: 20 MG, 1X/DAY
     Route: 048
  18. AMLODIPINE [Concomitant]
     Active Substance: AMLODIPINE BESYLATE
     Dosage: 10 MG, 1X/DAY
     Route: 048
  19. INSULIN ASPART [Concomitant]
     Active Substance: INSULIN ASPART
     Dosage: UNK, 3X/DAY
     Route: 058

REACTIONS (9)
  - Acute kidney injury [Unknown]
  - Diabetic foot infection [Recovered/Resolved with Sequelae]
  - Papule [Unknown]
  - Osteomyelitis acute [Recovered/Resolved with Sequelae]
  - Streptococcal sepsis [Unknown]
  - Foot amputation [Recovered/Resolved with Sequelae]
  - Chest pain [Unknown]
  - Microcytic anaemia [Unknown]
  - Sinus tachycardia [Unknown]

NARRATIVE: CASE EVENT DATE: 20160302
